FAERS Safety Report 21558772 (Version 2)
Quarter: 2022Q4

REPORT INFORMATION
  Report Type: Spontaneous
  Country: BY (occurrence: None)
  Receive Date: 20221107
  Receipt Date: 20221229
  Transmission Date: 20230113
  Serious: Yes (Death, Hospitalization)
  Sender: FDA-Public Use
  Company Number: BY-ROCHE-3213545

PATIENT
  Age: 62 Year
  Sex: Male

DRUGS (2)
  1. TECENTRIQ [Suspect]
     Active Substance: ATEZOLIZUMAB
     Indication: Non-small cell lung cancer
     Dosage: SINGLE INJECTION
     Route: 041
     Dates: start: 20220131, end: 20220131
  2. TECENTRIQ [Suspect]
     Active Substance: ATEZOLIZUMAB
     Dosage: DAILY DOSE OF SUSPECTED MEDICINAL PRODUCT AND REGIMEN:1200 MG EVERY 21 DAYS
     Route: 042

REACTIONS (1)
  - COVID-19 [Fatal]

NARRATIVE: CASE EVENT DATE: 20220212
